FAERS Safety Report 16383504 (Version 3)
Quarter: 2021Q2

REPORT INFORMATION
  Report Type: Spontaneous
  Country: US (occurrence: US)
  Receive Date: 20190603
  Receipt Date: 20210526
  Transmission Date: 20210716
  Serious: No
  Sender: FDA-Public Use
  Company Number: US-PFIZER INC-2019237468

PATIENT
  Age: 62 Year
  Sex: Female

DRUGS (4)
  1. VITAMIN B6 [Concomitant]
     Active Substance: PYRIDOXINE HYDROCHLORIDE
     Dosage: 50 MG, UNK
     Dates: start: 20190415
  2. LOSARTAN. [Concomitant]
     Active Substance: LOSARTAN
     Dosage: UNK (50MG (1/2 TAB))
     Dates: start: 20190405
  3. XELJANZ [Suspect]
     Active Substance: TOFACITINIB CITRATE
     Indication: ARTHRITIS
     Dosage: ONE?HALF TABLET TWICE A DAY (10 MG)
     Route: 048
     Dates: start: 20190529
  4. ISONIAZID. [Concomitant]
     Active Substance: ISONIAZID
     Dosage: 300 MG, UNK
     Dates: start: 20190415

REACTIONS (3)
  - Musculoskeletal stiffness [Unknown]
  - Dysgraphia [Unknown]
  - Gait disturbance [Unknown]
